FAERS Safety Report 8009435-1 (Version None)
Quarter: 2011Q4

REPORT INFORMATION
  Report Type: 
  Country: None (occurrence: None)
  Receive Date: 20111227
  Receipt Date: 20111222
  Transmission Date: 20120403
  Serious: Yes (Hospitalization, Other)
  Sender: FDA-Public Use
  Company Number: US-B.I. PHARMACEUTICALS,INC./RIDGEFIELD-2011-BP-25714BP

PATIENT
  Age: 87 Year
  Sex: Female
  Weight: 46.6 kg

DRUGS (14)
  1. PRADAXA [Suspect]
     Indication: ATRIAL FIBRILLATION
     Dosage: 300 MG
     Route: 048
     Dates: start: 20110801, end: 20111013
  2. M.V.I. [Concomitant]
  3. MULTI-VITAMIN [Concomitant]
  4. LEVOTHYROXINE SODIUM [Concomitant]
     Dosage: 0.088 MG
     Route: 048
  5. DOCUSATE [Concomitant]
     Route: 048
  6. SYNTHROID [Concomitant]
  7. HYDRALAZINE HCL [Concomitant]
     Route: 048
  8. METOPROLOL SUCCINATE [Concomitant]
     Dosage: 25 MG
     Route: 048
  9. ANASTROZOLE [Concomitant]
     Dosage: 1 MG
     Route: 048
  10. TEMAZEPAM [Concomitant]
  11. BONIVA [Concomitant]
  12. TOPROL-XL [Concomitant]
  13. APRESOLINE [Concomitant]
  14. BENICAR HCT [Concomitant]
     Route: 048

REACTIONS (4)
  - FALL [None]
  - LETHARGY [None]
  - CONFUSIONAL STATE [None]
  - ENDOCARDITIS [None]
